FAERS Safety Report 9540729 (Version 1)
Quarter: 2013Q3

REPORT INFORMATION
  Report Type: Spontaneous
  Country: US (occurrence: US)
  Receive Date: 20130920
  Receipt Date: 20130920
  Transmission Date: 20140515
  Serious: Yes (Death, Other)
  Sender: FDA-Public Use
  Company Number: US-LUNDBECK-DKLU1093727

PATIENT
  Age: 16 Year
  Sex: Male
  Weight: 82 kg

DRUGS (10)
  1. ONFI [Suspect]
     Indication: LENNOX-GASTAUT SYNDROME
     Route: 048
     Dates: start: 20120125
  2. ONFI [Suspect]
     Route: 048
  3. ONFI [Suspect]
     Route: 048
  4. ONFI [Suspect]
     Route: 048
  5. DILANTIN [Suspect]
     Indication: EPILEPSY
     Route: 048
  6. DILANTIN [Suspect]
  7. DILANTIN [Suspect]
     Dates: start: 20100710
  8. MIRALAX [Concomitant]
     Indication: CONSTIPATION
  9. VITAMIN B6 [Concomitant]
     Indication: PRODUCT USED FOR UNKNOWN INDICATION
  10. DIASTAT [Concomitant]
     Indication: CONVULSION

REACTIONS (4)
  - Sudden unexplained death in epilepsy [Fatal]
  - Convulsion [Unknown]
  - Drug level above therapeutic [Unknown]
  - Upper respiratory tract infection [Unknown]
